FAERS Safety Report 12931476 (Version 4)
Quarter: 2017Q3

REPORT INFORMATION
  Report Type: Spontaneous
  Country: KR (occurrence: KR)
  Receive Date: 20161110
  Receipt Date: 20170810
  Transmission Date: 20171127
  Serious: Yes (Other)
  Sender: FDA-Public Use
  Company Number: KR-JNJFOC-20161023995

PATIENT

DRUGS (1)
  1. INFLIXIMAB, RECOMBINANT [Suspect]
     Active Substance: INFLIXIMAB
     Indication: RHEUMATOID ARTHRITIS
     Route: 042

REACTIONS (13)
  - Hypertension [Unknown]
  - Cellulitis [Unknown]
  - Wound infection [Unknown]
  - Dyspepsia [Unknown]
  - Pyrexia [Unknown]
  - Infusion related reaction [Unknown]
  - Back pain [Unknown]
  - Nasopharyngitis [Unknown]
  - Latent tuberculosis [Unknown]
  - Erysipelas [Unknown]
  - Bronchitis [Unknown]
  - Pulmonary tuberculosis [Unknown]
  - Pharyngitis [Unknown]
